FAERS Safety Report 5999928-0 (Version None)
Quarter: 2008Q4

REPORT INFORMATION
  Report Type: 
  Country: None (occurrence: None)
  Receive Date: 20081215
  Receipt Date: 20081205
  Transmission Date: 20090506
  Serious: Yes (Other)
  Sender: FDA-Public Use
  Company Number: PHHY2008JP30277

PATIENT
  Sex: Female

DRUGS (1)
  1. GLEEVEC [Suspect]
     Indication: CHRONIC MYELOID LEUKAEMIA
     Dosage: UNK
     Route: 048
     Dates: start: 20070101

REACTIONS (13)
  - ASTHENIA [None]
  - BLOOD DISORDER [None]
  - CONSTIPATION [None]
  - DRY SKIN [None]
  - EYELID OEDEMA [None]
  - FACE OEDEMA [None]
  - FEELING COLD [None]
  - GASTROINTESTINAL DISORDER [None]
  - PERINEAL PAIN [None]
  - PLEURAL EFFUSION [None]
  - PULMONARY CONGESTION [None]
  - PULSE PRESSURE DECREASED [None]
  - SPLEEN DISORDER [None]
